FAERS Safety Report 11587888 (Version 4)
Quarter: 2015Q4

REPORT INFORMATION
  Report Type: Report from Study
  Country: US (occurrence: US)
  Receive Date: 20151001
  Receipt Date: 20151028
  Transmission Date: 20160304
  Serious: Yes (Death, Other)
  Sender: FDA-Public Use
  Company Number: US-009507513-1510USA000552

PATIENT
  Age: 5 Year
  Sex: Male

DRUGS (4)
  1. HEXADROL [Suspect]
     Active Substance: DEXAMETHASONE
     Dosage: 5 DAYS EVERY 4 WEEKS (UNKNOWN 5 IN 4 WK)
     Route: 048
  2. METHOTREXATE [Suspect]
     Active Substance: METHOTREXATE
     Indication: ACUTE LYMPHOCYTIC LEUKAEMIA
     Dosage: UNK, QW
     Route: 048
  3. HEXADROL [Suspect]
     Active Substance: DEXAMETHASONE
     Indication: ACUTE LYMPHOCYTIC LEUKAEMIA
     Dosage: UNK, QD
     Route: 048
  4. MERCAPTOPURINE. [Suspect]
     Active Substance: MERCAPTOPURINE
     Indication: ACUTE LYMPHOCYTIC LEUKAEMIA
     Dosage: UNK,DAILY
     Route: 048

REACTIONS (2)
  - Disseminated cryptococcosis [Fatal]
  - Cardio-respiratory arrest [Fatal]
